FAERS Safety Report 7359753-5 (Version None)
Quarter: 2011Q1

REPORT INFORMATION
  Report Type: 
  Country: None (occurrence: None)
  Receive Date: 20110317
  Receipt Date: 20110304
  Transmission Date: 20110831
  Serious: Yes (Hospitalization)
  Sender: FDA-Public Use
  Company Number: FR-CELGENEUS-056-21880-11021171

PATIENT
  Sex: Male
  Weight: 76 kg

DRUGS (15)
  1. CYTARABINE [Suspect]
     Indication: MANTLE CELL LYMPHOMA
     Dosage: 8 GRAM
     Route: 065
     Dates: end: 20101127
  2. METFORMIN HCL [Concomitant]
     Dosage: 1000 MILLIGRAM
     Route: 048
  3. CIPROFIBRATE [Concomitant]
     Dosage: 100 MILLIGRAM
     Route: 065
  4. PERMIXON [Concomitant]
     Dosage: 320 MILLIGRAM
     Route: 065
  5. SOLUPRED [Concomitant]
     Route: 065
     Dates: start: 20101109
  6. ZELITREX [Concomitant]
     Indication: INFECTION PROPHYLAXIS
     Dosage: 1000 MILLIGRAM
     Route: 065
  7. CO-RENITEC [Concomitant]
     Dosage: 20 MILLIGRAM
     Route: 065
  8. OXALIPLATIN [Suspect]
     Indication: MANTLE CELL LYMPHOMA
     Dosage: 100 MILLIGRAM
     Route: 065
     Dates: end: 20101127
  9. OMEPRAZOLE [Concomitant]
     Indication: PROPHYLAXIS
     Route: 048
  10. EFFERALGAN [Concomitant]
     Route: 065
  11. RITUXIMAB [Suspect]
     Indication: MANTLE CELL LYMPHOMA
     Dosage: 600 MILLIGRAM
     Route: 065
     Dates: end: 20101127
  12. LOVENOX [Concomitant]
     Indication: THROMBOSIS PROPHYLAXIS
     Dosage: .4 MILLILITER
     Route: 065
  13. SOLUPRED [Concomitant]
     Dosage: 40 MILLIGRAM
     Route: 065
     Dates: start: 20070101
  14. REVLIMID [Suspect]
     Indication: MANTLE CELL LYMPHOMA
     Dosage: 10 MILLIGRAM
     Route: 048
     Dates: start: 20101112, end: 20101126
  15. BACTRIM [Concomitant]
     Route: 048

REACTIONS (1)
  - GENERAL PHYSICAL HEALTH DETERIORATION [None]
